FAERS Safety Report 17218844 (Version 1)
Quarter: 2020Q1

REPORT INFORMATION
  Report Type: Spontaneous
  Country: US (occurrence: US)
  Receive Date: 20191230
  Receipt Date: 20191230
  Transmission Date: 20200409
  Serious: Yes (Other)
  Sender: FDA-Public Use
  Company Number: None

PATIENT
  Age: 84 Year
  Sex: Female
  Weight: 46.35 kg

DRUGS (1)
  1. ARALAST NP [Suspect]
     Active Substance: .ALPHA.1-PROTEINASE INHIBITOR HUMAN
     Indication: ALPHA-1 ANTI-TRYPSIN DEFICIENCY
     Dosage: ?          OTHER FREQUENCY:EVERY OTHER WEEK;?
     Route: 042

REACTIONS (2)
  - Malaise [None]
  - Pyrexia [None]

NARRATIVE: CASE EVENT DATE: 20191229
